FAERS Safety Report 6912661-3 (Version None)
Quarter: 2010Q3

REPORT INFORMATION
  Report Type: 
  Country: None (occurrence: None)
  Receive Date: 20100806
  Receipt Date: 20080929
  Transmission Date: 20110219
  Serious: No
  Sender: FDA-Public Use
  Company Number: US-PFIZER INC-2008076337

PATIENT
  Sex: Female

DRUGS (7)
  1. DETROL LA [Suspect]
     Indication: HYPERTONIC BLADDER
     Dates: start: 20080803
  2. ATACAND HCT [Concomitant]
  3. SIMVASTATIN [Concomitant]
  4. GLIBOMET [Concomitant]
  5. NAPROSYN [Concomitant]
  6. AMBIEN [Concomitant]
  7. VITAMIN TAB [Concomitant]

REACTIONS (1)
  - DRUG INEFFECTIVE [None]
